FAERS Safety Report 23202699 (Version 1)
Quarter: 2023Q4

REPORT INFORMATION
  Report Type: Spontaneous
  Country: BA (occurrence: BA)
  Receive Date: 20231120
  Receipt Date: 20231120
  Transmission Date: 20240109
  Serious: Yes (Death, Life-Threatening, Hospitalization, Other)
  Sender: FDA-Public Use
  Company Number: BA-CELLTRION INC.-2023BA022051

PATIENT

DRUGS (6)
  1. INFLIXIMAB [Suspect]
     Active Substance: INFLIXIMAB
     Indication: Behcet^s syndrome
     Dosage: 0,2 AND 6 WEEKS, AND THEN EVERY 8 WEEKS (8 MG/KG)
     Dates: start: 202109
  2. INFLIXIMAB [Suspect]
     Active Substance: INFLIXIMAB
     Dosage: 0,2 AND 6 WEEKS, AND THEN EVERY 8 WEEKS (8 MG/KG)
     Dates: start: 202109
  3. INFLIXIMAB [Suspect]
     Active Substance: INFLIXIMAB
     Dosage: 0,2 AND 6 WEEKS, AND THEN EVERY 8 WEEKS (8 MG/KG)
     Dates: start: 202109
  4. INFLIXIMAB [Suspect]
     Active Substance: INFLIXIMAB
     Dosage: 8 MG/KG, EVERY 8 WEEKS
  5. AZATHIOPRINE [Suspect]
     Active Substance: AZATHIOPRINE
     Indication: Behcet^s syndrome
     Dosage: DOSE OF 2 X 50MG
  6. METHYLPREDNISOLONE [Suspect]
     Active Substance: METHYLPREDNISOLONE
     Indication: Behcet^s syndrome
     Dosage: 1 X 4MG

REACTIONS (6)
  - Septic shock [Fatal]
  - Acute respiratory distress syndrome [Unknown]
  - Pulmonary tuberculosis [Unknown]
  - Pneumonia [Unknown]
  - Staphylococcal skin infection [Unknown]
  - Intentional product use issue [Unknown]

NARRATIVE: CASE EVENT DATE: 20210101
